FAERS Safety Report 5664942-1 (Version None)
Quarter: 2008Q1

REPORT INFORMATION
  Report Type: 
  Country: None (occurrence: None)
  Receive Date: 20080314
  Receipt Date: 20080305
  Transmission Date: 20080703
  Serious: Yes (Other)
  Sender: FDA-Public Use
  Company Number: US-ELI_LILLY_AND_COMPANY-US200802001870

PATIENT
  Sex: Female

DRUGS (11)
  1. PROZAC [Suspect]
     Indication: MIGRAINE
     Dosage: 20 MG, DAILY (1/D)
     Dates: start: 19860101, end: 20071029
  2. CYMBALTA [Suspect]
     Indication: BACK PAIN
     Dosage: 30 MG, DAILY (1/D)
     Dates: start: 20071029, end: 20071201
  3. CYMBALTA [Suspect]
     Dosage: 60 MG, DAILY (1/D)
     Dates: start: 20071206
  4. CYMBALTA [Suspect]
     Dosage: 30 MG, UNK
     Dates: end: 20080101
  5. LISINOPRIL [Concomitant]
  6. LIPITOR [Concomitant]
  7. LORTAB [Concomitant]
  8. ROBAXIN [Concomitant]
  9. KLONOPIN [Concomitant]
  10. ASTELIN [Concomitant]
  11. MECLIZINE [Concomitant]

REACTIONS (9)
  - COLITIS [None]
  - DEPRESSION [None]
  - DRUG WITHDRAWAL SYNDROME [None]
  - FIBROMYALGIA [None]
  - MIGRAINE [None]
  - SPINAL FUSION SURGERY [None]
  - TEARFULNESS [None]
  - VISION BLURRED [None]
  - VITAMIN D DECREASED [None]
